FAERS Safety Report 5759663-0 (Version None)
Quarter: 2008Q2

REPORT INFORMATION
  Report Type: 
  Country: None (occurrence: None)
  Receive Date: 20080605
  Receipt Date: 20080602
  Transmission Date: 20081010
  Serious: Yes (Other)
  Sender: FDA-Public Use
  Company Number: FR-RB-001702-08

PATIENT
  Age: 40 Year
  Sex: Female

DRUGS (6)
  1. SUBUTEX [Suspect]
     Indication: DRUG USE FOR UNKNOWN INDICATION
     Dosage: UNKNOWN
     Route: 065
  2. SUBOXONE [Suspect]
     Indication: DRUG USE FOR UNKNOWN INDICATION
     Route: 060
     Dates: start: 20080521
  3. MEPROBAMATE [Suspect]
     Indication: ANXIETY
     Dosage: 4 TABLETS TAKEN ONCE
     Route: 048
     Dates: start: 20080527, end: 20080527
  4. MEPROBAMATE [Suspect]
     Route: 048
     Dates: start: 19980101, end: 20080528
  5. OXAZEPAM [Suspect]
     Indication: ANXIETY
     Route: 048
     Dates: start: 19980101
  6. OXAZEPAM [Suspect]
     Dosage: 4 TABLETS TAKEN ONCE
     Route: 048
     Dates: start: 20080527, end: 20080527

REACTIONS (1)
  - SUICIDE ATTEMPT [None]
